FAERS Safety Report 9914104 (Version 1)
Quarter: 2014Q1

REPORT INFORMATION
  Report Type: Spontaneous
  Country: US (occurrence: None)
  Receive Date: 20140214
  Receipt Date: 20140214
  Transmission Date: 20141002
  Serious: Yes (Death, Hospitalization)
  Sender: FDA-Public Use
  Company Number: 2014AP001091

PATIENT
  Age: 41 Year
  Sex: Female

DRUGS (8)
  1. ZIPRASIDONE HYDROCHLORIDE [Suspect]
  2. CLONAZEPAM [Suspect]
  3. LITHIUM CARBONATE CAPSULES [Suspect]
  4. PROPOFOL [Suspect]
     Indication: AGITATION
  5. SUXAMETHONIUM CHLORIDE [Suspect]
     Indication: ENDOTRACHEAL INTUBATION
  6. BENZATROPINE [Concomitant]
  7. CLOMIPRAMINE [Concomitant]
  8. LAMOTRIGINE [Concomitant]

REACTIONS (4)
  - Neuroleptic malignant syndrome [None]
  - Acute respiratory failure [None]
  - Mental status changes [None]
  - Multi-organ failure [None]
